FAERS Safety Report 19501986 (Version 1)
Quarter: 2021Q3

REPORT INFORMATION
  Report Type: Spontaneous
  Country: US (occurrence: US)
  Receive Date: 20210707
  Receipt Date: 20210707
  Transmission Date: 20211014
  Serious: Yes (Other)
  Sender: FDA-Public Use
  Company Number: None

PATIENT
  Sex: Male
  Weight: 105.75 kg

DRUGS (1)
  1. JUNGLE JUICE PLATINUM (ISOBUTYL NITRITE) [Suspect]
     Active Substance: ISOBUTYL NITRITE
     Indication: APHRODISIAC THERAPY
     Dates: start: 20170901

REACTIONS (5)
  - Migraine [None]
  - Erectile dysfunction [None]
  - Dependence [None]
  - Sinus disorder [None]
  - Epistaxis [None]
